FAERS Safety Report 15455383 (Version 1)
Quarter: 2018Q4

REPORT INFORMATION
  Report Type: Report from Study
  Country: None (occurrence: US)
  Receive Date: 20181002
  Receipt Date: 20181002
  Transmission Date: 20190204
  Serious: Yes (Death)
  Sender: FDA-Public Use
  Company Number: US-ABBVIE-18S-163-2504772-00

PATIENT
  Age: 2 Year
  Sex: Male

DRUGS (1)
  1. LUPRON DEPOT-PED [Suspect]
     Active Substance: LEUPROLIDE ACETATE
     Indication: HYPERPITUITARISM
     Route: 050
     Dates: end: 20180907

REACTIONS (1)
  - Death [Fatal]

NARRATIVE: CASE EVENT DATE: 20180907
